FAERS Safety Report 5849898-0 (Version None)
Quarter: 2008Q3

REPORT INFORMATION
  Report Type: 
  Country: None (occurrence: None)
  Receive Date: 20080819
  Receipt Date: 20080813
  Transmission Date: 20090109
  Serious: Yes (Hospitalization, Other)
  Sender: FDA-Public Use
  Company Number: US-ASTRAZENECA-2008UW16068

PATIENT
  Age: 67 Year
  Sex: Female

DRUGS (1)
  1. ARIMIDEX [Suspect]
     Route: 048
     Dates: start: 20060401

REACTIONS (4)
  - ADVERSE DRUG REACTION [None]
  - MUSCULOSKELETAL STIFFNESS [None]
  - OSTEOPOROSIS [None]
  - WRIST FRACTURE [None]
